FAERS Safety Report 18229250 (Version 1)
Quarter: 2020Q3

REPORT INFORMATION
  Report Type: Spontaneous
  Country: FR (occurrence: FR)
  Receive Date: 20200903
  Receipt Date: 20200903
  Transmission Date: 20201103
  Serious: Yes (Hospitalization)
  Sender: FDA-Public Use
  Company Number: FR-TEVA-2020-FR-1822134

PATIENT
  Age: 67 Year
  Sex: Male

DRUGS (2)
  1. PREDNISOLONE. [Suspect]
     Active Substance: PREDNISOLONE
     Indication: CORONAVIRUS INFECTION
     Dosage: 60 MG
     Route: 048
     Dates: start: 20200720, end: 20200727
  2. DEXAMETHASONE MYLAN 20 MG/5 ML, SOLUTION INJECTABLE EN AMPOULE [Suspect]
     Active Substance: DEXAMETHASONE
     Indication: CORONAVIRUS INFECTION
     Dosage: 6 MG
     Route: 042
     Dates: start: 20200727, end: 20200803

REACTIONS (1)
  - Hepatitis [Recovering/Resolving]

NARRATIVE: CASE EVENT DATE: 20200803
